FAERS Safety Report 14125210 (Version 1)
Quarter: 2017Q4

REPORT INFORMATION
  Report Type: Spontaneous
  Country: US (occurrence: None)
  Receive Date: 20171025
  Receipt Date: 20171025
  Transmission Date: 20180321
  Serious: Yes (Other)
  Sender: FDA-Public Use
  Company Number: None

PATIENT
  Age: 67 Year
  Sex: Female
  Weight: 102.06 kg

DRUGS (8)
  1. METFORMIN [Concomitant]
     Active Substance: METFORMIN HYDROCHLORIDE
  2. JANUVIA [Concomitant]
     Active Substance: SITAGLIPTIN PHOSPHATE
  3. VICTOZA [Concomitant]
     Active Substance: LIRAGLUTIDE
  4. OLOPATADINE 0.2% OPHTH SOLN 2.5 ML [Suspect]
     Active Substance: OLOPATADINE
     Indication: DRY EYE
     Dosage: 1 DROP IN EACH EYE IN MORNING
     Route: 047
     Dates: start: 20170628, end: 20170628
  5. OLMESARTAN MEDOX/HCTZ [Concomitant]
  6. SIMVASTATIN. [Concomitant]
     Active Substance: SIMVASTATIN
  7. SYNTHROID [Concomitant]
     Active Substance: LEVOTHYROXINE SODIUM
  8. CULTURELLE PROBOTICS [Concomitant]

REACTIONS (3)
  - Product substitution issue [None]
  - Skin burning sensation [None]
  - Eye irritation [None]

NARRATIVE: CASE EVENT DATE: 20170628
